FAERS Safety Report 13045544 (Version 1)
Quarter: 2016Q4

REPORT INFORMATION
  Report Type: Spontaneous
  Country: US (occurrence: US)
  Receive Date: 20161220
  Receipt Date: 20161220
  Transmission Date: 20170207
  Serious: Yes (Death, Hospitalization)
  Sender: FDA-Public Use
  Company Number: None

PATIENT
  Age: 66 Year
  Sex: Male
  Weight: 130 kg

DRUGS (2)
  1. CASODEX [Suspect]
     Active Substance: BICALUTAMIDE
     Dates: end: 20161107
  2. LEUPROLIDE ACETATE. [Suspect]
     Active Substance: LEUPROLIDE ACETATE
     Dates: end: 20160602

REACTIONS (5)
  - Pulmonary oedema [None]
  - Wound [None]
  - Respiratory failure [None]
  - Multiple organ dysfunction syndrome [None]
  - Lung infiltration [None]

NARRATIVE: CASE EVENT DATE: 20161108
